FAERS Safety Report 7744325-0 (Version None)
Quarter: 2011Q3

REPORT INFORMATION
  Report Type: 
  Country: None (occurrence: None)
  Receive Date: 20110912
  Receipt Date: 20110908
  Transmission Date: 20111222
  Serious: Yes (Other)
  Sender: FDA-Public Use
  Company Number: US-JNJFOC-20110903796

PATIENT

DRUGS (2)
  1. ASPIRIN [Concomitant]
     Indication: ILL-DEFINED DISORDER
  2. XARELTO [Suspect]
     Indication: THROMBOSIS PROPHYLAXIS
     Route: 048
     Dates: start: 20110101, end: 20110101

REACTIONS (1)
  - HAEMOLYTIC ANAEMIA [None]
